FAERS Safety Report 6397320-0 (Version None)
Quarter: 2009Q4

REPORT INFORMATION
  Report Type: 
  Country: None (occurrence: None)
  Receive Date: 20091012
  Receipt Date: 20091005
  Transmission Date: 20100525
  Serious: Yes (Other)
  Sender: FDA-Public Use
  Company Number: JP-AVENTIS-200912770JP

PATIENT
  Sex: Male

DRUGS (3)
  1. AMARYL [Suspect]
     Route: 048
  2. VOGLIBOSE [Concomitant]
  3. HYPOTENSOR [Concomitant]

REACTIONS (1)
  - BLOOD POTASSIUM INCREASED [None]
